FAERS Safety Report 5809756-4 (Version None)
Quarter: 2008Q3

REPORT INFORMATION
  Report Type: 
  Country: None (occurrence: None)
  Receive Date: 20080715
  Receipt Date: 20080710
  Transmission Date: 20090109
  Serious: Yes (Death, Hospitalization)
  Sender: FDA-Public Use
  Company Number: KR-AVENTIS-200816561GDDC

PATIENT
  Age: 58 Year
  Sex: Male
  Weight: 57 kg

DRUGS (15)
  1. DOCETAXEL [Suspect]
     Route: 042
     Dates: start: 20080523, end: 20080613
  2. CARBOPLATIN [Suspect]
     Route: 042
     Dates: start: 20080523, end: 20080613
  3. DEXAMETHASONE [Concomitant]
     Dates: start: 20080523, end: 20080614
  4. LOSARTAN POTASSIUM [Concomitant]
     Indication: HYPERTENSION
     Dates: start: 20080520
  5. ALFUZOSIN HCL [Concomitant]
     Dates: start: 20080520
  6. LAMIVUDINE [Concomitant]
     Dates: start: 20080522
  7. CODEINE PHOSPHATE [Concomitant]
     Dates: start: 20080623
  8. DIMETHISTERONE [Concomitant]
     Dates: start: 20080623
  9. CIMETIDINE [Concomitant]
     Dates: start: 20080623
  10. CIPROFLOXACIN [Concomitant]
     Dates: start: 20080623, end: 20080627
  11. UNKNOWN DRUG [Concomitant]
     Indication: COUGH
  12. UNKNOWN DRUG [Concomitant]
  13. METOCLOPRAMIDE [Concomitant]
     Indication: NAUSEA
     Dates: start: 20080522, end: 20080531
  14. METOCLOPRAMIDE [Concomitant]
     Indication: VOMITING
     Dates: start: 20080522, end: 20080531
  15. CHLORPHENIRAMINE MALEATE [Concomitant]
     Dates: start: 20080522, end: 20080524

REACTIONS (2)
  - DYSPNOEA [None]
  - PNEUMONITIS [None]
